FAERS Safety Report 7790801-4 (Version None)
Quarter: 2011Q3

REPORT INFORMATION
  Report Type: 
  Country: None (occurrence: None)
  Receive Date: 20110930
  Receipt Date: 20110928
  Transmission Date: 20111222
  Serious: Yes (Other)
  Sender: FDA-Public Use
  Company Number: GB-MERCK-1109GBR00142

PATIENT
  Age: 43 Year
  Sex: Female

DRUGS (4)
  1. SINGULAIR [Suspect]
     Indication: ASTHMA
     Route: 048
     Dates: start: 20110712, end: 20110803
  2. BUDESONIDE [Concomitant]
     Route: 065
  3. CARBOCYSTEINE [Concomitant]
     Route: 065
  4. TERBUTALINE SULFATE [Concomitant]
     Route: 065

REACTIONS (2)
  - SUICIDAL IDEATION [None]
  - AGGRESSION [None]
